FAERS Safety Report 17333516 (Version 2)
Quarter: 2020Q1

REPORT INFORMATION
  Report Type: Spontaneous
  Country: CH (occurrence: CH)
  Receive Date: 20200128
  Receipt Date: 20200206
  Transmission Date: 20200409
  Serious: Yes (Life-Threatening, Hospitalization, Other)
  Sender: FDA-Public Use
  Company Number: CH-PURDUE PHARMA-GBR-2020-0074705

PATIENT
  Age: 31 Year
  Sex: Male

DRUGS (7)
  1. SEVRE-LONG [Suspect]
     Active Substance: MORPHINE SULFATE
     Dosage: 400 MG, UNK (IN TOTAL)
     Route: 042
     Dates: start: 20191113, end: 20191113
  2. SEVRE-LONG [Suspect]
     Active Substance: MORPHINE SULFATE
     Indication: PRODUCT USED FOR UNKNOWN INDICATION
     Dosage: 350 MG, UNK (IN TOTAL)
     Route: 042
     Dates: start: 20191230, end: 20191230
  3. SEVRE-LONG [Suspect]
     Active Substance: MORPHINE SULFATE
     Dosage: 300 MG, UNK (IN TOTAL)
     Route: 042
     Dates: start: 20191011, end: 20191011
  4. DORMICUM                           /00634101/ [Suspect]
     Active Substance: MIDAZOLAM HYDROCHLORIDE
     Dosage: 15 MG, UNK (IN TOTAL)
     Route: 042
     Dates: start: 20191011, end: 20191011
  5. DORMICUM                           /00634101/ [Suspect]
     Active Substance: MIDAZOLAM HYDROCHLORIDE
     Dosage: 15 MG, UNK (IN TOTAL)
     Route: 042
     Dates: start: 20191113, end: 20191113
  6. DORMICUM                           /00634101/ [Suspect]
     Active Substance: MIDAZOLAM HYDROCHLORIDE
     Indication: PRODUCT USED FOR UNKNOWN INDICATION
     Dosage: UNK (IN TOTAL)
     Route: 042
     Dates: start: 20191230, end: 20191230
  7. HEROIN [Suspect]
     Active Substance: DIAMORPHINE
     Indication: PRODUCT USED FOR UNKNOWN INDICATION
     Dosage: 0.1G, UNK (IN TOTAL)
     Route: 042
     Dates: start: 20191113, end: 20191113

REACTIONS (11)
  - Loss of consciousness [Recovered/Resolved]
  - Rash erythematous [Recovered/Resolved]
  - Tachycardia [Recovered/Resolved]
  - Hypotension [Recovered/Resolved]
  - Tonic clonic movements [Unknown]
  - Incorrect route of product administration [Unknown]
  - Loss of consciousness [Unknown]
  - Miosis [Recovered/Resolved]
  - Circulatory collapse [Recovered/Resolved]
  - Oxygen saturation decreased [Recovered/Resolved]
  - Loss of consciousness [Unknown]

NARRATIVE: CASE EVENT DATE: 20191011
